FAERS Safety Report 16333904 (Version 1)
Quarter: 2019Q2

REPORT INFORMATION
  Report Type: Spontaneous
  Country: DK (occurrence: DK)
  Receive Date: 20190520
  Receipt Date: 20190520
  Transmission Date: 20190711
  Serious: Yes (Death, Hospitalization)
  Sender: FDA-Public Use
  Company Number: DK-TEVA-2019-DK-1051167

PATIENT
  Age: 80 Year
  Sex: Male

DRUGS (3)
  1. PROLIA [Concomitant]
     Active Substance: DENOSUMAB
     Indication: HORMONE-REFRACTORY PROSTATE CANCER
     Route: 058
     Dates: start: 20170201
  2. BICALUTAMIDE ^TEVA^ [Suspect]
     Active Substance: BICALUTAMIDE
     Indication: HORMONE-REFRACTORY PROSTATE CANCER
     Route: 048
     Dates: start: 20180103, end: 20180507
  3. PAMORELIN [Concomitant]
     Active Substance: TRIPTORELIN PAMOATE
     Indication: HORMONE-REFRACTORY PROSTATE CANCER
     Route: 030
     Dates: start: 20170201

REACTIONS (6)
  - Loss of consciousness [Fatal]
  - Dependence on oxygen therapy [Fatal]
  - Cardiac arrest [Fatal]
  - Dyspnoea [Fatal]
  - Pneumonia [Fatal]
  - Pulmonary function test decreased [Fatal]

NARRATIVE: CASE EVENT DATE: 2018
